FAERS Safety Report 26120318 (Version 1)
Quarter: 2025Q4

REPORT INFORMATION
  Report Type: Spontaneous
  Country: US (occurrence: US)
  Receive Date: 20251204
  Receipt Date: 20251204
  Transmission Date: 20260118
  Serious: Yes (Death, Life-Threatening, Other)
  Sender: MACLEODS
  Company Number: None

PATIENT

DRUGS (1)
  1. CLOPIDOGREL [Suspect]
     Active Substance: CLOPIDOGREL BISULFATE
     Indication: Peripheral arterial occlusive disease
     Dosage: UNK
     Route: 065

REACTIONS (4)
  - Embolism venous [Fatal]
  - Ischaemic stroke [Fatal]
  - Acquired haemophilia [Unknown]
  - Haematoma [Unknown]
